FAERS Safety Report 14305768 (Version 1)
Quarter: 2017Q4

REPORT INFORMATION
  Report Type: Spontaneous
  Country: None (occurrence: IT)
  Receive Date: 20171219
  Receipt Date: 20171219
  Transmission Date: 20180321
  Serious: Yes (Other)
  Sender: FDA-Public Use
  Company Number: IT-LABORATOIRE HRA PHARMA-2037426

PATIENT
  Age: 36 Year
  Sex: Female
  Weight: 63 kg

DRUGS (1)
  1. ELLA [Suspect]
     Active Substance: ULIPRISTAL ACETATE
     Indication: POST COITAL CONTRACEPTION
     Route: 048
     Dates: start: 20171201, end: 20171201

REACTIONS (4)
  - Abortion spontaneous [None]
  - Incorrect dosage administered [None]
  - Vaginal haemorrhage [None]
  - Exposure during pregnancy [None]

NARRATIVE: CASE EVENT DATE: 20171201
